FAERS Safety Report 6328360-5 (Version None)
Quarter: 2009Q3

REPORT INFORMATION
  Report Type: 
  Country: None (occurrence: None)
  Receive Date: 20090825
  Receipt Date: 20090428
  Transmission Date: 20100115
  Serious: No
  Sender: FDA-Public Use
  Company Number: US-ABBOTT-09P-163-0570666-00

PATIENT
  Age: 67 Year
  Sex: Female

DRUGS (4)
  1. SYNTHROID [Suspect]
     Indication: THYROIDECTOMY
     Dates: start: 19910101, end: 20090301
  2. SYNTHROID [Suspect]
     Route: 048
     Dates: start: 20090401
  3. LEVOTHYROXINE SODIUM [Suspect]
     Indication: DRUG USE FOR UNKNOWN INDICATION
     Dates: start: 20090301, end: 20090401
  4. METFORMIN HCL [Concomitant]
     Indication: DRUG USE FOR UNKNOWN INDICATION

REACTIONS (2)
  - BLOOD GLUCOSE FLUCTUATION [None]
  - DIABETES MELLITUS [None]
